FAERS Safety Report 7318644-6 (Version None)
Quarter: 2011Q1

REPORT INFORMATION
  Report Type: 
  Country: None (occurrence: None)
  Receive Date: 20110223
  Receipt Date: 20110223
  Transmission Date: 20110831
  Serious: Yes (Life-Threatening, Hospitalization)
  Sender: FDA-Public Use
  Company Number: None

PATIENT
  Age: 90 Year
  Sex: Female
  Weight: 50.8029 kg

DRUGS (1)
  1. PRADAXA [Suspect]
     Indication: ATRIAL FIBRILLATION
     Dosage: .80 2 DAILY PO
     Route: 048
     Dates: start: 20110208, end: 20110215

REACTIONS (5)
  - MALAISE [None]
  - OVERDOSE [None]
  - BLOOD DISORDER [None]
  - ASTHENIA [None]
  - HAEMATOCHEZIA [None]
